FAERS Safety Report 14672326 (Version 1)
Quarter: 2018Q1

REPORT INFORMATION
  Report Type: Report from Study
  Country: JP (occurrence: JP)
  Receive Date: 20180323
  Receipt Date: 20180323
  Transmission Date: 20180509
  Serious: Yes (Other)
  Sender: FDA-Public Use
  Company Number: JP-ROCHE-1874775

PATIENT

DRUGS (6)
  1. VITAMIN B12 [Concomitant]
     Active Substance: CYANOCOBALAMIN
  2. PEMETREXED. [Suspect]
     Active Substance: PEMETREXED
     Indication: NON-SMALL CELL LUNG CANCER
     Route: 042
  3. BEVACIZUMAB. [Suspect]
     Active Substance: BEVACIZUMAB
     Indication: NON-SMALL CELL LUNG CANCER
     Dosage: ON DAY 1
     Route: 042
  4. CARBOPLATIN. [Suspect]
     Active Substance: CARBOPLATIN
     Indication: NON-SMALL CELL LUNG CANCER
     Dosage: AT AUC OF 6.0 MG/ML MIN
     Route: 042
  5. FOLIC ACID. [Concomitant]
     Active Substance: FOLIC ACID
  6. ERLOTINIB [Suspect]
     Active Substance: ERLOTINIB
     Indication: NON-SMALL CELL LUNG CANCER
     Dosage: DOSE LEVEL 1: 100 MG DAILY?DOSE LEVEL 2 : 150 MG DAILY
     Route: 048

REACTIONS (8)
  - Neutropenia [Unknown]
  - Stomatitis [Unknown]
  - Alanine aminotransferase increased [Unknown]
  - Rash [Unknown]
  - Aspartate aminotransferase increased [Unknown]
  - Anaemia [Unknown]
  - Interstitial lung disease [Unknown]
  - Thrombocytopenia [Unknown]
